FAERS Safety Report 10112236 (Version 2)
Quarter: 2014Q2

REPORT INFORMATION
  Report Type: Spontaneous
  Country: NG (occurrence: NG)
  Receive Date: 20140425
  Receipt Date: 20140617
  Transmission Date: 20141212
  Serious: Yes (Hospitalization)
  Sender: FDA-Public Use
  Company Number: PHHY2014NG049804

PATIENT
  Age: 42 Year
  Sex: Female

DRUGS (7)
  1. DICLOFENAC [Suspect]
     Indication: PYREXIA
     Dosage: 50 MG, QD (ONE DOSE DAILY)
     Route: 048
     Dates: start: 20130419
  2. PARACETAMOL [Interacting]
     Indication: PYREXIA
     Dosage: 1000 MG, UNK
     Route: 048
  3. PARACETAMOL [Interacting]
     Dosage: 600 UNK, UNK
     Route: 030
  4. CEFTRIAXON [Concomitant]
     Indication: PLEURAL EFFUSION
     Dosage: UNK
     Route: 042
     Dates: start: 201303
  5. METRONIDAZOLE [Concomitant]
     Indication: PLEURAL EFFUSION
  6. ZIDOVUDINE [Concomitant]
     Indication: HIV INFECTION
     Dosage: 150 MG, QD
  7. NEVIRAPINE [Concomitant]
     Indication: HIV INFECTION
     Dosage: 200 MG

REACTIONS (4)
  - Generalised tonic-clonic seizure [Recovered/Resolved]
  - Hyperhidrosis [Recovered/Resolved]
  - Dyskinesia [Recovered/Resolved]
  - Asthenia [Recovered/Resolved]
